FAERS Safety Report 9103575 (Version 1)
Quarter: 2013Q1

REPORT INFORMATION
  Report Type: Spontaneous
  Country: GB (occurrence: GB)
  Receive Date: 20130219
  Receipt Date: 20130219
  Transmission Date: 20140127
  Serious: Yes (Death, Hospitalization, Other)
  Sender: FDA-Public Use
  Company Number: GB-TEVA-386339ISR

PATIENT
  Age: 60 Year
  Sex: Male
  Weight: 77 kg

DRUGS (31)
  1. GEMCITABINE [Suspect]
     Indication: NON-SMALL CELL LUNG CANCER STAGE IIIA
     Dosage: OVER 30 MINS
     Route: 042
     Dates: start: 20120806, end: 20121015
  2. CARBOPLATIN [Concomitant]
     Indication: NON-SMALL CELL LUNG CANCER STAGE IIIA
     Dosage: OVER 60 MINUTES
     Route: 042
  3. AMIODARONE [Concomitant]
  4. CARBOCISTEINE [Concomitant]
  5. LANSOPRAZOLE [Concomitant]
  6. NAPROXEN [Concomitant]
  7. RADIOTHERAPY [Concomitant]
     Dosage: 22 SESSIONS
     Dates: end: 20130103
  8. TIOTROPIUM [Concomitant]
     Dosage: 1 PUFF
     Route: 055
  9. SALBUTAMOL [Concomitant]
     Dosage: 2 PUFFS WHEN NECESSARY
     Route: 055
  10. MORPHINE SULPHATE [Concomitant]
     Dosage: WHEN NECESSARY
  11. CO-CODAMOL [Concomitant]
     Dosage: 8/500MG, WHEN NECESSARY
  12. NYSTATIN [Concomitant]
  13. GAVISCON [Concomitant]
     Dosage: 5-10ML FOUR TIMES DAILY
  14. AMOXICILLIN\CLAVULANATE POTASSIUM [Concomitant]
     Dosage: FOR 7 DAYS
     Dates: start: 20130110
  15. DALTEPARIN [Concomitant]
     Route: 058
  16. FUROSEMIDE [Concomitant]
     Route: 042
  17. NORMAL SALINE [Concomitant]
  18. DIAMORPHINE [Concomitant]
     Dosage: 0.5-1MG WHEN NECESSARY
  19. TAZOCIN [Concomitant]
     Route: 042
  20. CASPOFUNGIN [Concomitant]
     Route: 042
  21. CLARITHROMYCIN [Concomitant]
     Route: 042
  22. CO-TRIMOXAZOLE [Concomitant]
     Route: 042
     Dates: start: 20130117
  23. ACYCLOVIR [Concomitant]
     Route: 042
  24. ESOMEPRAZOLE [Concomitant]
     Route: 042
  25. HYDROCORTISONE [Concomitant]
     Route: 042
  26. MEROPENEM [Concomitant]
     Route: 042
  27. PROPOFOL [Concomitant]
     Dosage: 0-30ML PER HOUR
  28. FENTANYL [Concomitant]
     Dosage: 0-500MCG PER HOUR
  29. MIDAZOLAM [Concomitant]
     Dosage: 1-8MG PER HOUR
  30. EPOPROSTENOL [Concomitant]
  31. NORADRENALINE [Concomitant]

REACTIONS (9)
  - Pulmonary fibrosis [Fatal]
  - Lower respiratory tract infection [Not Recovered/Not Resolved]
  - Productive cough [Not Recovered/Not Resolved]
  - Dyspnoea [Not Recovered/Not Resolved]
  - Haemoptysis [Not Recovered/Not Resolved]
  - Dyspnoea exertional [Not Recovered/Not Resolved]
  - Thrombocytopenia [Not Recovered/Not Resolved]
  - Renal failure acute [Not Recovered/Not Resolved]
  - Pneumonia [Not Recovered/Not Resolved]
